FAERS Safety Report 8406882-0 (Version None)
Quarter: 2012Q2

REPORT INFORMATION
  Report Type: 
  Country: None (occurrence: None)
  Receive Date: 20120529
  Receipt Date: 20040901
  Transmission Date: 20120825
  Serious: Yes (Other)
  Sender: FDA-Public Use
  Company Number: 02100-JPN-04-0258

PATIENT
  Age: 72 Year
  Sex: Male

DRUGS (6)
  1. WARFARIN SODIUM [Suspect]
     Dosage: ORAL
     Route: 048
     Dates: start: 20040901
  2. PLETAL [Suspect]
     Indication: PERIPHERAL ARTERIAL OCCLUSIVE DISEASE
     Dosage: ORAL ; 100 MG, BID, ORAL
     Route: 048
     Dates: start: 20040901
  3. LASIX [Suspect]
     Dosage: ORAL
     Route: 048
     Dates: start: 20040901
  4. ALDACTONE [Suspect]
     Dosage: ORAL
     Route: 048
     Dates: start: 20040901
  5. FAMOTIDINE [Suspect]
     Dosage: 20 MG, BID, ORAL
     Route: 048
     Dates: start: 20040901
  6. LAC B (LACTOBACILLUS BIFIDUS, LYOPHILIZED) TABLET [Suspect]
     Dosage: ORAL
     Route: 048
     Dates: start: 20040901

REACTIONS (2)
  - SEPSIS [None]
  - DRUG ERUPTION [None]
